FAERS Safety Report 4301865-4 (Version None)
Quarter: 2004Q1

REPORT INFORMATION
  Report Type: 
  Country: None (occurrence: None)
  Receive Date: 20040223
  Receipt Date: 20040210
  Transmission Date: 20041129
  Serious: Yes (Hospitalization)
  Sender: FDA-Public Use
  Company Number: WAES 0402USA01579

PATIENT
  Age: 17 Year
  Sex: Female
  Weight: 100 kg

DRUGS (1)
  1. PEPCID [Suspect]
     Indication: GASTROOESOPHAGEAL REFLUX DISEASE

REACTIONS (13)
  - ABDOMINAL PAIN [None]
  - ANXIETY [None]
  - BOWEL SOUNDS ABNORMAL [None]
  - DEHYDRATION [None]
  - DIARRHOEA [None]
  - ENTEROCOLITIS INFECTIOUS [None]
  - GASTROENTERITIS VIRAL [None]
  - HEADACHE [None]
  - IMPAIRED GASTRIC EMPTYING [None]
  - NAUSEA [None]
  - PANCREATITIS [None]
  - STRESS SYMPTOMS [None]
  - VOMITING [None]
